FAERS Safety Report 5542204-0 (Version None)
Quarter: 2007Q4

REPORT INFORMATION
  Report Type: 
  Country: None (occurrence: None)
  Receive Date: 20071129
  Receipt Date: 20070516
  Transmission Date: 20080405
  Serious: Yes (Other)
  Sender: FDA-Public Use
  Company Number: US200704002700

PATIENT
  Age: 68 Year
  Sex: Female
  Weight: 77.1 kg

DRUGS (6)
  1. ZYPREXA [Suspect]
     Indication: PSYCHOTIC DISORDER
     Dosage: 10 MG, 7.5 MG, 5 MG, 2.5 MG
     Dates: start: 20000101, end: 20020201
  2. ZYPREXA [Suspect]
     Indication: PSYCHOTIC DISORDER
     Dosage: 10 MG, 7.5 MG, 5 MG, 2.5 MG
     Dates: start: 20020501, end: 20040501
  3. ZYPREXA [Suspect]
     Indication: PSYCHOTIC DISORDER
     Dosage: 10 MG, 7.5 MG, 5 MG, 2.5 MG
     Dates: start: 20050501, end: 20050801
  4. ZYPREXA [Suspect]
     Indication: PSYCHOTIC DISORDER
     Dosage: 10 MG, 7.5 MG, 5 MG, 2.5 MG
     Dates: start: 19991115
  5. PROZAC [Concomitant]
  6. HALDOL (HALOPERIDOL DECANOATE) [Concomitant]

REACTIONS (6)
  - BLOOD CHOLESTEROL INCREASED [None]
  - DIABETES MELLITUS [None]
  - DIABETIC COMA [None]
  - DIABETIC KETOACIDOSIS [None]
  - HYPERGLYCAEMIA [None]
  - PANCREATITIS [None]
